FAERS Safety Report 21746148 (Version 1)
Quarter: 2022Q4

REPORT INFORMATION
  Report Type: Other
  Country: RO (occurrence: None)
  Receive Date: 20221219
  Receipt Date: 20221219
  Transmission Date: 20230113
  Serious: Yes (Hospitalization)
  Sender: FDA-Public Use
  Company Number: RO-ROCHE-3238845

PATIENT
  Sex: Female
  Weight: 60 kg

DRUGS (1)
  1. ESBRIET [Suspect]
     Active Substance: PIRFENIDONE
     Indication: Idiopathic pulmonary fibrosis
     Route: 065

REACTIONS (4)
  - Gait disturbance [Unknown]
  - Weight decreased [Unknown]
  - Decreased appetite [Unknown]
  - Food aversion [Unknown]
